FAERS Safety Report 19661943 (Version 1)
Quarter: 2021Q3

REPORT INFORMATION
  Report Type: Spontaneous
  Country: US (occurrence: US)
  Receive Date: 20210805
  Receipt Date: 20210805
  Transmission Date: 20211014
  Serious: Yes (Other)
  Sender: FDA-Public Use
  Company Number: US-ACCORD-194734

PATIENT
  Age: 53 Year
  Sex: Female
  Weight: 74.39 kg

DRUGS (4)
  1. DOCETAXEL ACCORD [Suspect]
     Active Substance: DOCETAXEL
     Indication: BREAST CANCER
     Dosage: NUMBER OF CYCLES:  05,EVERY THREE WEEKS
     Dates: start: 20140131, end: 20140425
  2. EXEMESTANE. [Concomitant]
     Active Substance: EXEMESTANE
     Dates: start: 201505
  3. HYDROCHLOROTHIAZIDE. [Concomitant]
     Active Substance: HYDROCHLOROTHIAZIDE
     Dates: start: 200402
  4. GEMZAR [Suspect]
     Active Substance: GEMCITABINE HYDROCHLORIDE
     Indication: BREAST CANCER
     Dosage: NUMBER OF CYCLES:  05,EVERY THREE WEEKS
     Dates: start: 20140131, end: 20140425

REACTIONS (1)
  - Alopecia [Not Recovered/Not Resolved]

NARRATIVE: CASE EVENT DATE: 2014
